FAERS Safety Report 6245188-5 (Version None)
Quarter: 2009Q2

REPORT INFORMATION
  Report Type: 
  Country: None (occurrence: None)
  Receive Date: 20090625
  Receipt Date: 20090619
  Transmission Date: 20091009
  Serious: Yes (Death, Hospitalization)
  Sender: FDA-Public Use
  Company Number: PHHO2009DE07759

PATIENT
  Sex: Male

DRUGS (22)
  1. CYCLOSPORINE [Suspect]
     Indication: RENAL TRANSPLANT
     Dosage: UNK
     Route: 048
  2. MYCOPHENOLATE MOFETIL [Suspect]
     Indication: RENAL TRANSPLANT
     Dosage: 500MG TWICE DAILY
     Dates: start: 20041022, end: 20041114
  3. DACLIZUMAB [Suspect]
     Indication: RENAL TRANSPLANT
     Dosage: 160 MG
     Dates: start: 20041021, end: 20041128
  4. METHYLPREDNISOLONE [Suspect]
     Dosage: 500 MG ONCE DAILY
     Dates: start: 20041021
  5. TACROLIMUS [Suspect]
     Indication: RENAL TRANSPLANT
     Dosage: 4 MG ONCE DAILY
     Dates: start: 20041021
  6. SIROLIMUS [Suspect]
  7. LIQUAEMIN INJ [Suspect]
  8. PRAVASTATIN SODIUM [Concomitant]
  9. METOPROLOL SUCCINATE [Concomitant]
  10. METOPROLOL SUCCINATE [Concomitant]
  11. CORDAREX [Concomitant]
  12. CEFAZOLIN [Concomitant]
  13. CEFPODOXIME PROXETIL [Concomitant]
  14. CILASTATIN SODIUM [Concomitant]
  15. DIFLUCAN [Concomitant]
  16. FUROSEMID [Concomitant]
  17. INSULIN [Concomitant]
  18. CORVATON [Concomitant]
  19. MOXIFLOXACIN HCL [Concomitant]
  20. PIPERACILLIN [Concomitant]
  21. SULBACTAM [Concomitant]
  22. VANCOMYCIN [Concomitant]

REACTIONS (9)
  - ABSCESS DRAINAGE [None]
  - ASPERGILLOSIS [None]
  - CANDIDIASIS [None]
  - HAEMATOMA EVACUATION [None]
  - HAEMORRHAGE [None]
  - PNEUMONIA [None]
  - RETROPERITONEAL HAEMATOMA [None]
  - SEPSIS [None]
  - SUBCUTANEOUS ABSCESS [None]
